FAERS Safety Report 25856683 (Version 1)
Quarter: 2025Q3

REPORT INFORMATION
  Report Type: Spontaneous
  Country: EU (occurrence: EU)
  Receive Date: 20250929
  Receipt Date: 20250929
  Transmission Date: 20251020
  Serious: Yes (Other)
  Sender: AUROBINDO
  Company Number: EU-BRISTOL-MYERS SQUIBB COMPANY-2024-048859

PATIENT
  Age: 72 Year
  Sex: Male

DRUGS (9)
  1. PACLITAXEL [Suspect]
     Active Substance: PACLITAXEL
     Indication: Non-small cell lung cancer
     Route: 065
     Dates: start: 20230920
  2. CARBOPLATIN [Suspect]
     Active Substance: CARBOPLATIN
     Indication: Non-small cell lung cancer
     Dosage: 550 MILLIGRAM, TWO TIMES A DAY
     Route: 042
     Dates: start: 20230920
  3. OPDIVO [Suspect]
     Active Substance: NIVOLUMAB
     Indication: Non-small cell lung cancer
     Route: 042
     Dates: start: 20230920
  4. YERVOY [Suspect]
     Active Substance: IPILIMUMAB
     Indication: Non-small cell lung cancer
     Dosage: 80 MILLIGRAM, (ALL 2 WEEKS (Q 14 DAYS))
     Route: 042
     Dates: start: 20230920
  5. VITAMIN D [Concomitant]
     Active Substance: VITAMIN D NOS
     Indication: Product used for unknown indication
     Route: 065
  6. CHOLECALCIFEROL [Concomitant]
     Active Substance: CHOLECALCIFEROL
     Indication: Product used for unknown indication
     Route: 065
     Dates: start: 20231030
  7. ELIQUIS [Concomitant]
     Active Substance: APIXABAN
     Indication: Product used for unknown indication
     Route: 065
     Dates: start: 20240125
  8. POLYETHYLENE GLYCOLS [Concomitant]
     Active Substance: POLYETHYLENE GLYCOLS
     Indication: Prophylaxis
     Route: 065
     Dates: start: 20230927
  9. INNOHEP [Concomitant]
     Active Substance: TINZAPARIN SODIUM
     Indication: Product used for unknown indication
     Route: 065
     Dates: start: 20230914, end: 20240124

REACTIONS (11)
  - Autoimmune thyroiditis [Not Recovered/Not Resolved]
  - Hypothyroidism [Not Recovered/Not Resolved]
  - Hyperthyroidism [Unknown]
  - Autoimmune cholangitis [Unknown]
  - Immunoglobulin G4 related disease [Unknown]
  - Autoimmune hepatitis [Recovered/Resolved]
  - Amaurosis fugax [Recovered/Resolved]
  - Androgen deficiency [Unknown]
  - Lymphocytic hypophysitis [Recovered/Resolved]
  - Vitamin D deficiency [Unknown]
  - Off label use [Unknown]

NARRATIVE: CASE EVENT DATE: 20231011
